FAERS Safety Report 9181768 (Version 1)
Quarter: 2013Q1

REPORT INFORMATION
  Report Type: Spontaneous
  Country: US (occurrence: None)
  Receive Date: 20130321
  Receipt Date: 20130321
  Transmission Date: 20140127
  Serious: Yes (Hospitalization)
  Sender: FDA-Public Use
  Company Number: None

PATIENT
  Age: 84 Year
  Sex: Female
  Weight: 36 kg

DRUGS (9)
  1. METHOTREXATE [Suspect]
     Indication: RHEUMATOID ARTHRITIS
     Dosage: PRIOR TO ADMISSION 17.5 MG WEEKLY PO
     Route: 048
  2. AMLODIPINE [Concomitant]
  3. BENAZEPRIL [Concomitant]
  4. CALCIUM + VITAMIN D [Concomitant]
  5. FOLIC ACID [Concomitant]
  6. PREDNISONE [Concomitant]
  7. TRAMADOL [Concomitant]
  8. LIDOCAINE PATCH [Concomitant]
  9. TORSEMIDE [Concomitant]

REACTIONS (4)
  - Stomatitis [None]
  - Mucosal inflammation [None]
  - Pancytopenia [None]
  - Febrile neutropenia [None]
